FAERS Safety Report 9991856 (Version 1)
Quarter: 2014Q1

REPORT INFORMATION
  Report Type: Spontaneous
  Country: DE (occurrence: DE)
  Receive Date: 20140310
  Receipt Date: 20140310
  Transmission Date: 20141002
  Serious: Yes (Other)
  Sender: FDA-Public Use
  Company Number: DE-TEVA-466271GER

PATIENT
  Age: 1 Day
  Sex: Male

DRUGS (5)
  1. OPIPRAMOL [Suspect]
     Route: 064
  2. DIAZEPAM [Suspect]
     Route: 064
  3. KADEFUNGIN [Concomitant]
     Route: 064
  4. FEMIBION [Concomitant]
     Route: 064
  5. MELPERONE [Concomitant]
     Route: 064

REACTIONS (3)
  - Neonatal respiratory distress syndrome [Recovered/Resolved]
  - Oxygen saturation decreased [Recovered/Resolved]
  - Motor developmental delay [Unknown]
